FAERS Safety Report 5047175-1 (Version None)
Quarter: 2006Q3

REPORT INFORMATION
  Report Type: 
  Country: None (occurrence: None)
  Receive Date: 20060703
  Receipt Date: 20060627
  Transmission Date: 20061208
  Serious: Yes (Life-Threatening)
  Sender: FDA-Public Use
  Company Number: 2006US000895

PATIENT
  Age: 66 Year
  Sex: Male
  Weight: 101.6 kg

DRUGS (3)
  1. ADENOSCAN [Suspect]
     Indication: SCAN MYOCARDIAL PERFUSION
     Dosage: 58.9 MG, TOTAL DOSE, PARENTERAL
     Route: 051
  2. THALLIUM (201 TL) (THALLIUM (20 TL)) [Concomitant]
  3. URECHOLINE (BETANECHOL CHLORIDE) [Concomitant]

REACTIONS (2)
  - ARTERIOSPASM CORONARY [None]
  - CARDIAC PROCEDURE COMPLICATION [None]
